FAERS Safety Report 19051311 (Version 1)
Quarter: 2021Q1

REPORT INFORMATION
  Report Type: Spontaneous
  Country: US (occurrence: US)
  Receive Date: 20210324
  Receipt Date: 20210324
  Transmission Date: 20210420
  Serious: Yes (Death)
  Sender: FDA-Public Use
  Company Number: None

PATIENT
  Age: 79 Year
  Sex: Male
  Weight: 88.2 kg

DRUGS (8)
  1. TEMOZOLOMIDE. [Suspect]
     Active Substance: TEMOZOLOMIDE
     Indication: LYMPHOMA
     Route: 048
     Dates: start: 20210108, end: 20210324
  2. PROTONIX [Concomitant]
     Active Substance: PANTOPRAZOLE SODIUM
  3. COREG [Concomitant]
     Active Substance: CARVEDILOL
  4. KEPPRA [Concomitant]
     Active Substance: LEVETIRACETAM
  5. ASPIRIN 81 [Concomitant]
     Active Substance: ASPIRIN
  6. CARDIZEM CD [Concomitant]
     Active Substance: DILTIAZEM HYDROCHLORIDE
  7. LIPITOR [Concomitant]
     Active Substance: ATORVASTATIN CALCIUM
  8. RITUXAN [Concomitant]
     Active Substance: RITUXIMAB

REACTIONS (1)
  - Death [None]

NARRATIVE: CASE EVENT DATE: 20210324
